FAERS Safety Report 17368555 (Version 2)
Quarter: 2020Q2

REPORT INFORMATION
  Report Type: Report from Study
  Country: CA (occurrence: CA)
  Receive Date: 20200204
  Receipt Date: 20200417
  Transmission Date: 20200713
  Serious: Yes (Other)
  Sender: FDA-Public Use
  Company Number: CA-JNJFOC-20191244844

PATIENT
  Sex: Male
  Weight: 85 kg

DRUGS (9)
  1. COENZYME Q10 [Concomitant]
     Active Substance: UBIDECARENONE
  2. CELEBREX [Concomitant]
     Active Substance: CELECOXIB
     Route: 065
  3. SANDOZ TELMISARTAN [Concomitant]
     Active Substance: TELMISARTAN
  4. SANDOZ FENOFIBRATE [Concomitant]
  5. SYNTHROID [Concomitant]
     Active Substance: LEVOTHYROXINE SODIUM
  6. TAMSULOSIN HYDROCHLORIDE. [Concomitant]
     Active Substance: TAMSULOSIN HYDROCHLORIDE
  7. OXYCOCET [Concomitant]
     Active Substance: ACETAMINOPHEN\OXYCODONE HYDROCHLORIDE
     Dosage: 5 MG-325 MG
  8. REMICADE [Suspect]
     Active Substance: INFLIXIMAB
     Indication: PSORIATIC ARTHROPATHY
     Route: 042
     Dates: start: 20190410, end: 20200123
  9. CHOLECALCIFEROL [Concomitant]
     Active Substance: CHOLECALCIFEROL
     Dosage: 1,000 UNIT (25 MCG)
     Route: 048

REACTIONS (6)
  - Oropharyngeal pain [Not Recovered/Not Resolved]
  - Insomnia [Not Recovered/Not Resolved]
  - Enlarged uvula [Not Recovered/Not Resolved]
  - Stress [Unknown]
  - Hepatic enzyme increased [Unknown]
  - Lupus-like syndrome [Not Recovered/Not Resolved]
